FAERS Safety Report 17042075 (Version 1)
Quarter: 2019Q4

REPORT INFORMATION
  Report Type: Spontaneous
  Country: US (occurrence: US)
  Receive Date: 20191017
  Receipt Date: 20191017
  Transmission Date: 20200122
  Serious: No
  Sender: FDA-Public Use
  Company Number: None

PATIENT
  Age: 86 Year
  Sex: Male

DRUGS (1)
  1. ERLEADA [Suspect]
     Active Substance: APALUTAMIDE
     Indication: PROSTATE CANCER
     Route: 048
     Dates: start: 201904

REACTIONS (4)
  - Product communication issue [None]
  - Dementia [None]
  - Hypoacusis [None]
  - Therapy non-responder [None]

NARRATIVE: CASE EVENT DATE: 20191017
